FAERS Safety Report 11142036 (Version 2)
Quarter: 2015Q2

REPORT INFORMATION
  Report Type: Spontaneous
  Country: US (occurrence: US)
  Receive Date: 20150527
  Receipt Date: 20150612
  Transmission Date: 20150821
  Serious: Yes (Hospitalization, Other)
  Sender: FDA-Public Use
  Company Number: US-BAYER-2015-233695

PATIENT
  Age: 40 Year
  Sex: Female
  Weight: 145.13 kg

DRUGS (7)
  1. AMLODIPINE [Concomitant]
     Active Substance: AMLODIPINE BESYLATE
     Dosage: 10 MG, QD
     Route: 048
  2. MIRALAX [Suspect]
     Active Substance: POLYETHYLENE GLYCOL 3350
     Indication: COLONOSCOPY
     Dosage: 1 DF, ONCE (1 BOTTLE)
     Dates: start: 20150215
  3. ALEVE [Suspect]
     Active Substance: NAPROXEN SODIUM
  4. HYDROCHLOROTHIAZIDE. [Concomitant]
     Active Substance: HYDROCHLOROTHIAZIDE
     Dosage: 25 MG, QD
     Route: 048
  5. LEVOTHYROXINE [Concomitant]
     Active Substance: LEVOTHYROXINE
     Dosage: 300 ?G, QD
     Route: 048
  6. PHENTERMINE [Concomitant]
     Active Substance: PHENTERMINE
     Dosage: 37.5 MG, QD
     Route: 048
  7. CYCLOBENZAPRINE [Concomitant]
     Active Substance: CYCLOBENZAPRINE
     Dosage: 10 MG, PRN Q8HR
     Route: 048

REACTIONS (16)
  - Syncope [None]
  - Decreased appetite [None]
  - Epigastric discomfort [None]
  - Depressed level of consciousness [Recovered/Resolved]
  - Retching [Recovered/Resolved]
  - Product use issue [None]
  - Vertigo [None]
  - Blood pressure decreased [Recovered/Resolved]
  - Skin discolouration [Recovered/Resolved]
  - Dehydration [None]
  - Dyspepsia [None]
  - Loss of consciousness [Recovered/Resolved]
  - Nausea [Recovered/Resolved]
  - Diarrhoea [Recovered/Resolved]
  - Vomiting [Recovered/Resolved]
  - Drug hypersensitivity [None]

NARRATIVE: CASE EVENT DATE: 201502
